FAERS Safety Report 8200239-3 (Version None)
Quarter: 2012Q1

REPORT INFORMATION
  Report Type: 
  Country: None (occurrence: None)
  Receive Date: 20120312
  Receipt Date: 20120307
  Transmission Date: 20120608
  Serious: No
  Sender: FDA-Public Use
  Company Number: US-PFIZER INC-2012061420

PATIENT
  Sex: Female
  Weight: 99.773 kg

DRUGS (9)
  1. LOPRESSOR [Concomitant]
     Indication: HYPERTENSION
  2. CO-Q-10 [Concomitant]
     Indication: CARDIAC DISORDER
     Dosage: UNK
  3. TIKOSYN [Suspect]
     Indication: HEART RATE ABNORMAL
     Dosage: 125 UG, 2X/DAY
     Route: 048
     Dates: start: 20111201
  4. ALVESCO [Concomitant]
     Indication: ASTHMA
     Dosage: UNK
  5. ACETYLSALICYLIC ACID [Concomitant]
     Indication: CARDIAC DISORDER
     Dosage: 325 MG, DAILY
  6. ACETYLSALICYLIC ACID [Concomitant]
     Indication: HYPERTENSION
  7. VITAMIN B COMPLEX CAP [Concomitant]
     Dosage: UNK, DAILY
  8. LOPRESSOR [Concomitant]
     Indication: CARDIAC DISORDER
     Dosage: 50 MG, 2X/DAY
  9. SIMVASTATIN [Concomitant]
     Indication: BLOOD CHOLESTEROL ABNORMAL
     Dosage: 20 MG, DAILY

REACTIONS (6)
  - DEHYDRATION [None]
  - DIARRHOEA [None]
  - COLD SWEAT [None]
  - BRONCHITIS [None]
  - INFLUENZA [None]
  - PALPITATIONS [None]
